FAERS Safety Report 19802619 (Version 1)
Quarter: 2021Q3

REPORT INFORMATION
  Report Type: Report from Study
  Country: BR (occurrence: BR)
  Receive Date: 20210908
  Receipt Date: 20210908
  Transmission Date: 20211014
  Serious: Yes (Other)
  Sender: FDA-Public Use
  Company Number: BR-TOPROL-2021000191

PATIENT
  Sex: Male

DRUGS (1)
  1. SELOZOK [Suspect]
     Active Substance: METOPROLOL SUCCINATE
     Dosage: BID
     Route: 048

REACTIONS (2)
  - Dementia Alzheimer^s type [Unknown]
  - Off label use [Not Recovered/Not Resolved]
